FAERS Safety Report 7207048-2 (Version None)
Quarter: 2011Q1

REPORT INFORMATION
  Report Type: 
  Country: None (occurrence: None)
  Receive Date: 20110103
  Receipt Date: 20101222
  Transmission Date: 20110831
  Serious: Yes (Hospitalization)
  Sender: FDA-Public Use
  Company Number: B0690182A

PATIENT

DRUGS (2)
  1. LAMICTAL [Suspect]
     Route: 048
  2. VALPROATE SODIUM [Concomitant]
     Route: 048

REACTIONS (3)
  - PNEUMONIA [None]
  - RASH [None]
  - STEVENS-JOHNSON SYNDROME [None]
